FAERS Safety Report 8953650 (Version 1)
Quarter: 2012Q4

REPORT INFORMATION
  Report Type: 
  Country: DE (occurrence: DE)
  Receive Date: 20121206
  Receipt Date: 20121206
  Transmission Date: 20130627
  Serious: Yes (Other)
  Sender: FDA-Public Use
  Company Number: DE-UCBSA-064506

PATIENT
  Age: 58 Year
  Sex: Female
  Weight: 84 kg

DRUGS (2)
  1. NEUPRO [Suspect]
     Indication: RESTLESS LEGS SYNDROME
     Dosage: 3mg/24h
     Route: 062
     Dates: start: 201204
  2. ISICOM [Concomitant]
     Indication: RESTLESS LEGS SYNDROME
     Dosage: DRUG STRENGTH: 100MG/ 25 MG; DOSE: 1

REACTIONS (2)
  - Dermatitis contact [Not Recovered/Not Resolved]
  - Dermatitis allergic [Recovering/Resolving]
